FAERS Safety Report 9330511 (Version 1)
Quarter: 2013Q2

REPORT INFORMATION
  Report Type: Spontaneous
  Country: US (occurrence: None)
  Receive Date: 20130604
  Receipt Date: 20130604
  Transmission Date: 20140414
  Serious: Yes (Hospitalization)
  Sender: FDA-Public Use
  Company Number: None

PATIENT
  Age: 76 Year
  Sex: Female
  Weight: 51.5 kg

DRUGS (5)
  1. SEPHB4-HSA [Suspect]
     Indication: TONSIL CANCER
     Dosage: 10MG/KG D1, 8, 15, 22 IV DRIP
     Dates: start: 20130308, end: 20130531
  2. FLONASE [Concomitant]
  3. LORATEDINE [Concomitant]
  4. ALBUTERAL LIQUID [Concomitant]
  5. PEPCID OTC [Concomitant]

REACTIONS (3)
  - Chills [None]
  - Tremor [None]
  - Body temperature increased [None]
